FAERS Safety Report 7587016-1 (Version None)
Quarter: 2011Q3

REPORT INFORMATION
  Report Type: 
  Country: None (occurrence: None)
  Receive Date: 20110701
  Receipt Date: 20110623
  Transmission Date: 20111222
  Serious: Yes (Hospitalization)
  Sender: FDA-Public Use
  Company Number: PHFR2011IE02713

PATIENT
  Sex: Female

DRUGS (7)
  1. CITALOPRAM [Concomitant]
     Indication: DEPRESSION
     Dosage: 60 MG, QD
  2. PANTOPRAZOLE [Concomitant]
     Indication: GASTROINTESTINAL DISORDER
     Dosage: 1 DF, QD
     Route: 048
  3. ZOPICLONE [Concomitant]
     Indication: SEDATION
     Dosage: 7.5 MG NOCTE
     Route: 048
  4. CLOZAPINE [Suspect]
     Indication: SCHIZOPHRENIA
     Dosage: 150 MG MANE + 150 MG NOCTE
     Route: 048
     Dates: start: 20020510
  5. QUETIAPINE [Concomitant]
     Indication: SCHIZOPHRENIA
     Dosage: 300 MG, BID
     Route: 048
  6. VALPROIC ACID [Concomitant]
     Indication: AFFECTIVE DISORDER
     Dosage: 1000 MG NOCTE
     Route: 048
  7. KWELL [Concomitant]
     Indication: SALIVARY HYPERSECRETION
     Dosage: 2 DF, BID
     Route: 048

REACTIONS (3)
  - CONDITION AGGRAVATED [None]
  - CHRONIC OBSTRUCTIVE PULMONARY DISEASE [None]
  - INFECTION [None]
